FAERS Safety Report 5116901-5 (Version None)
Quarter: 2006Q3

REPORT INFORMATION
  Report Type: 
  Country: None (occurrence: None)
  Receive Date: 20060927
  Receipt Date: 20060927
  Transmission Date: 20061208
  Serious: Yes (Hospitalization)
  Sender: FDA-Public Use
  Company Number: None

PATIENT
  Sex: Female
  Weight: 62 kg

DRUGS (9)
  1. CARBOPLATIN [Suspect]
     Dosage: 579 MG
  2. PACLITAXEL [Suspect]
     Dosage: 271 MG
  3. AVALIDE [Concomitant]
  4. CALCIUM GLUCONATE [Concomitant]
  5. DECADRON [Concomitant]
  6. FOSAMAX [Concomitant]
  7. NU IRON [Concomitant]
  8. VITAMIN E [Concomitant]
  9. VYTORIN [Concomitant]

REACTIONS (1)
  - NEUTROPENIA [None]
